FAERS Safety Report 9790185 (Version 2)
Quarter: 2014Q1

REPORT INFORMATION
  Report Type: Spontaneous
  Country: US (occurrence: US)
  Receive Date: 20131231
  Receipt Date: 20140121
  Transmission Date: 20141002
  Serious: Yes (Hospitalization)
  Sender: FDA-Public Use
  Company Number: US-JNJFOC-20131214624

PATIENT
  Sex: Male

DRUGS (6)
  1. NUCYNTA [Suspect]
     Indication: BACK PAIN
     Route: 048
     Dates: end: 2013
  2. FENTANYL [Suspect]
     Indication: SEDATION
     Route: 065
  3. DILAUDID [Suspect]
     Indication: SEDATION
     Route: 065
  4. OXYCODONE [Suspect]
     Indication: SEDATION
     Route: 065
  5. FENTANYL I.V. [Suspect]
     Indication: PRODUCT USED FOR UNKNOWN INDICATION
     Route: 041
  6. VERSED [Concomitant]
     Route: 065

REACTIONS (3)
  - Road traffic accident [Unknown]
  - Adverse drug reaction [Not Recovered/Not Resolved]
  - Agitation [Not Recovered/Not Resolved]
